FAERS Safety Report 9146570 (Version 2)
Quarter: 2013Q2

REPORT INFORMATION
  Report Type: Spontaneous
  Country: JP (occurrence: JP)
  Receive Date: 20130307
  Receipt Date: 20130503
  Transmission Date: 20140414
  Serious: Yes (Hospitalization)
  Sender: FDA-Public Use
  Company Number: JP-SANOFI-AVENTIS-2013SA020275

PATIENT
  Age: 86 Year
  Sex: Male

DRUGS (7)
  1. WARFARIN SODIUM [Suspect]
     Indication: ANTICOAGULANT THERAPY
     Route: 048
  2. WARFARIN SODIUM [Suspect]
     Indication: ANTICOAGULANT THERAPY
     Route: 048
  3. ASPIRIN [Suspect]
     Indication: ANTIPLATELET THERAPY
     Route: 048
  4. CLOPIDOGREL BISULFATE [Suspect]
     Indication: ANTIPLATELET THERAPY
     Route: 048
  5. HEPARIN [Concomitant]
     Dosage: DOSE:10000 UNIT(S)
  6. PROTAMINE [Concomitant]
  7. BLOOD CELLS, PACKED HUMAN [Concomitant]
     Dosage: INFUSION DOSE:4 UNIT(S)

REACTIONS (6)
  - Mediastinal haematoma [Recovered/Resolved]
  - Nausea [Recovered/Resolved]
  - Dyspnoea [Recovered/Resolved]
  - Orthopnoea [Recovered/Resolved]
  - C-reactive protein increased [Recovered/Resolved]
  - Cardiac tamponade [Recovered/Resolved]
